FAERS Safety Report 9526735 (Version 1)
Quarter: 2013Q3

REPORT INFORMATION
  Report Type: Spontaneous
  Country: GB (occurrence: GB)
  Receive Date: 20130916
  Receipt Date: 20130916
  Transmission Date: 20140515
  Serious: Yes (Life-Threatening, Hospitalization, Disabling)
  Sender: FDA-Public Use
  Company Number: GB-TEVA-431166ISR

PATIENT
  Age: 73 Year
  Sex: Male

DRUGS (17)
  1. AMITRIPTYLINE [Suspect]
     Indication: NEURALGIA
     Dosage: 75 MILLIGRAM DAILY; TAKEN AT NIGHT.
     Route: 048
     Dates: start: 201212, end: 20130820
  2. TRAMADOL [Suspect]
     Indication: PAIN
     Dosage: 400 MILLIGRAM DAILY; MODIFIED RELEASE.
     Route: 048
     Dates: start: 20130715, end: 20130818
  3. CITALOPRAM [Suspect]
     Indication: DEPRESSION
     Dosage: 20 MILLIGRAM DAILY;
     Route: 048
     Dates: start: 20130802, end: 20130820
  4. CYMBALTA [Suspect]
     Indication: NEURALGIA
     Dosage: 60 MILLIGRAM DAILY;
     Route: 048
     Dates: start: 20130808, end: 20130821
  5. ADCAL-D3 [Concomitant]
  6. ALENDRONATE [Concomitant]
  7. BUMETANIDE [Concomitant]
  8. METFORMIN [Concomitant]
  9. OMEPRAZOLE [Concomitant]
  10. RAMIPRIL [Concomitant]
  11. WARFARIN [Concomitant]
  12. PARACETAMOL [Concomitant]
  13. DIHYDROCODEINE [Concomitant]
  14. BISOPROLOL [Concomitant]
  15. DIGOXIN [Concomitant]
  16. GABAPENTIN [Concomitant]
     Dosage: DRUG ALSO WITHDRAWN.
  17. PREDNISOLONE [Concomitant]

REACTIONS (5)
  - Serotonin syndrome [Not Recovered/Not Resolved]
  - Confusional state [Unknown]
  - Dyskinesia [Unknown]
  - Weight bearing difficulty [Unknown]
  - Nystagmus [Unknown]
